FAERS Safety Report 6906622-8 (Version None)
Quarter: 2010Q3

REPORT INFORMATION
  Report Type: 
  Country: None (occurrence: None)
  Receive Date: 20100804
  Receipt Date: 20100728
  Transmission Date: 20110219
  Serious: Yes (Other)
  Sender: FDA-Public Use
  Company Number: ES-JNJFOC-20100800010

PATIENT
  Age: 72 Year
  Sex: Female

DRUGS (1)
  1. CAELYX [Suspect]
     Indication: ENDOMETRIAL CANCER
     Route: 042

REACTIONS (1)
  - TREMOR [None]
